FAERS Safety Report 5586434-0 (Version None)
Quarter: 2008Q1

REPORT INFORMATION
  Report Type: 
  Country: None (occurrence: None)
  Receive Date: 20080108
  Receipt Date: 20080108
  Transmission Date: 20080703
  Serious: Yes (Hospitalization)
  Sender: FDA-Public Use
  Company Number: None

PATIENT
  Sex: Female

DRUGS (2)
  1. LOVENOX [Suspect]
     Indication: HIP ARTHROPLASTY
     Dosage: 40 MG ONCE DAILY SQ
     Route: 058
     Dates: start: 20071203, end: 20080102
  2. LOVENOX [Suspect]
     Indication: THROMBOSIS PROPHYLAXIS
     Dosage: 40 MG ONCE DAILY SQ
     Route: 058
     Dates: start: 20071203, end: 20080102

REACTIONS (1)
  - THROMBOCYTOPENIA [None]
